FAERS Safety Report 10668591 (Version 1)
Quarter: 2014Q4

REPORT INFORMATION
  Report Type: Spontaneous
  Country: US (occurrence: US)
  Receive Date: 20141222
  Receipt Date: 20141222
  Transmission Date: 20150529
  Serious: Yes (Other)
  Sender: FDA-Public Use
  Company Number: US-BAYER-2014-185056

PATIENT
  Age: 80 Year
  Sex: Female
  Weight: 70 kg

DRUGS (5)
  1. IRON [Concomitant]
     Active Substance: IRON
  2. BAYER EXTRA STRENGTH PM [Suspect]
     Active Substance: ASPIRIN\DIPHENHYDRAMINE
     Indication: SLEEP DISORDER THERAPY
     Dosage: 1 DF, ONCE DAILY
     Route: 048
  3. CALTRATE [CALCIUM CARBONATE] [Concomitant]
  4. CENTRUM [Concomitant]
     Active Substance: VITAMINS
  5. VITAMIN D [Concomitant]
     Active Substance: CHOLECALCIFEROL

REACTIONS (3)
  - Drug dependence [Unknown]
  - Intentional product misuse [Unknown]
  - Incorrect drug administration duration [Unknown]
